FAERS Safety Report 4384134-6 (Version None)
Quarter: 2004Q2

REPORT INFORMATION
  Report Type: 
  Country: None (occurrence: None)
  Receive Date: 20040623
  Receipt Date: 20040623
  Transmission Date: 20050107
  Serious: Yes (Life-Threatening)
  Sender: FDA-Public Use
  Company Number: None

PATIENT
  Sex: Female
  Weight: 45.8133 kg

DRUGS (5)
  1. CALAN [Suspect]
     Indication: ARRHYTHMIA
     Dosage: PO TID
     Route: 048
     Dates: start: 19890101, end: 20040616
  2. SYNTHROID [Concomitant]
  3. FLONASE [Concomitant]
  4. COMBIVENT [Concomitant]
  5. PREVACID [Concomitant]

REACTIONS (5)
  - ASTHENIA [None]
  - DEPRESSED LEVEL OF CONSCIOUSNESS [None]
  - HEART RATE INCREASED [None]
  - PHARMACEUTICAL PRODUCT COMPLAINT [None]
  - TREMOR [None]
